FAERS Safety Report 25131693 (Version 3)
Quarter: 2025Q2

REPORT INFORMATION
  Report Type: Spontaneous
  Country: FR (occurrence: FR)
  Receive Date: 20250327
  Receipt Date: 20250521
  Transmission Date: 20250716
  Serious: Yes (Other)
  Sender: ABBVIE
  Company Number: None

PATIENT
  Age: 60 Year
  Sex: Male

DRUGS (4)
  1. ESCITALOPRAM [Suspect]
     Active Substance: ESCITALOPRAM OXALATE
     Indication: Mixed anxiety and depressive disorder
     Dosage: 20 MILLIGRAM
     Route: 048
  2. OXAZEPAM [Suspect]
     Active Substance: OXAZEPAM
     Indication: Mixed anxiety and depressive disorder
     Dosage: 1 DOSAGE FORM
     Route: 048
  3. OLANZAPINE [Suspect]
     Active Substance: OLANZAPINE
     Indication: Product used for unknown indication
     Dosage: 10 MILLIGRAM
     Route: 048
  4. MELATONIN [Suspect]
     Active Substance: MELATONIN
     Indication: Insomnia
     Dosage: 1 DOSAGE FORM
     Route: 048

REACTIONS (1)
  - Dilated cardiomyopathy [Recovered/Resolved]
